FAERS Safety Report 24454496 (Version 2)
Quarter: 2024Q4

REPORT INFORMATION
  Report Type: Report from Study
  Country: CA (occurrence: CA)
  Receive Date: 20241017
  Receipt Date: 20241018
  Transmission Date: 20250115
  Serious: No
  Sender: ROCHE
  Company Number: CA-ROCHE-3465157

PATIENT
  Sex: Female

DRUGS (7)
  1. RITUXAN [Suspect]
     Active Substance: RITUXIMAB
     Indication: Granulomatosis with polyangiitis
     Dosage: DATE OF TREATMENT: 27/JUL/2023, DRUG DOSE FIRST ADMINISTERED IS 1000 MG MILLIGRAM(S)
     Route: 042
     Dates: start: 20151009
  2. ACETAMINOPHEN [Concomitant]
     Active Substance: ACETAMINOPHEN
  3. CIPROFLOXACIN HYDROCHLORIDE [Concomitant]
     Active Substance: CIPROFLOXACIN HYDROCHLORIDE
  4. DIPHENHYDRAMINE HYDROCHLORIDE [Concomitant]
     Active Substance: DIPHENHYDRAMINE HYDROCHLORIDE
     Dosage: ORAL DRUG DOSE FIRST ADMINISTERED IS 50 MG MILLIGRAM(S)
     Dates: start: 20151009
  5. METHYLPREDNISOLONE [Concomitant]
     Active Substance: METHYLPREDNISOLONE
     Dosage: INTRAVENOUS (NOT OTHERWISE SPECIFIED) DRUG DOSE FIRST ADMINISTERED IS 100 MG MILLIGRAM(S)
     Dates: start: 20151009
  6. OXYCODONE [Concomitant]
     Active Substance: OXYCODONE
  7. TRAZODONE [Concomitant]
     Active Substance: TRAZODONE HYDROCHLORIDE
     Dosage: MOREDOSAGEINFO IS HS

REACTIONS (2)
  - Off label use [Unknown]
  - No adverse event [Unknown]
